FAERS Safety Report 20707474 (Version 4)
Quarter: 2024Q3

REPORT INFORMATION
  Report Type: Spontaneous
  Country: US (occurrence: US)
  Receive Date: 20220413
  Receipt Date: 20240821
  Transmission Date: 20241016
  Serious: No
  Sender: PFIZER
  Company Number: US-PFIZER INC-202200064938

PATIENT
  Age: 58 Year
  Sex: Female

DRUGS (2)
  1. IBRANCE [Suspect]
     Active Substance: PALBOCICLIB
     Indication: Neoplasm malignant
     Dosage: 125 MG, CYCLIC (TAKE 1 TABLET ONCE DAILY, 21 OF EACH 28 DAY CYCLE)
     Route: 048
     Dates: start: 20211214
  2. XGEVA [Concomitant]
     Active Substance: DENOSUMAB
     Dosage: UNK

REACTIONS (2)
  - Sleep disorder [Unknown]
  - Fatigue [Unknown]
